FAERS Safety Report 18908148 (Version 1)
Quarter: 2021Q1

REPORT INFORMATION
  Report Type: Spontaneous
  Country: IT (occurrence: IT)
  Receive Date: 20210218
  Receipt Date: 20210218
  Transmission Date: 20210420
  Serious: Yes (Hospitalization)
  Sender: FDA-Public Use
  Company Number: IT-ASTRAZENECA-2021A027485

PATIENT
  Age: 64 Year
  Sex: Male
  Weight: 90 kg

DRUGS (4)
  1. SEMAGLUTIDE [Suspect]
     Active Substance: SEMAGLUTIDE
     Indication: OBESITY
     Route: 058
     Dates: start: 20200904
  2. PLACEBO [Suspect]
     Active Substance: UNSPECIFIED INGREDIENT
     Indication: OBESITY
     Route: 058
  3. TICAGRELOR. [Suspect]
     Active Substance: TICAGRELOR
     Route: 048
     Dates: start: 201912, end: 20201002
  4. ACETYLSALICYLIC ACID [Suspect]
     Active Substance: ASPIRIN
     Route: 065
     Dates: start: 201912

REACTIONS (1)
  - Lymphoedema [Recovered/Resolved]

NARRATIVE: CASE EVENT DATE: 20200916
